FAERS Safety Report 21861659 (Version 4)
Quarter: 2023Q1

REPORT INFORMATION
  Report Type: Report from Study
  Country: US (occurrence: US)
  Receive Date: 20230113
  Receipt Date: 20230324
  Transmission Date: 20230417
  Serious: Yes (Hospitalization, Other)
  Sender: FDA-Public Use
  Company Number: US-TAKEDA-2023TUS000599

PATIENT
  Age: 86 Year
  Sex: Female
  Weight: 63 kg

DRUGS (6)
  1. MOBOCERTINIB [Suspect]
     Active Substance: MOBOCERTINIB
     Indication: Non-small cell lung cancer metastatic
     Dosage: 160 MILLIGRAM, QD
     Route: 065
     Dates: start: 20230101, end: 20230107
  2. AMLODIPINE [Concomitant]
     Active Substance: AMLODIPINE BESYLATE
     Indication: Hypertension
     Dosage: UNK
     Route: 065
  3. PEPCID [Concomitant]
     Active Substance: FAMOTIDINE
     Indication: Dyspepsia
     Dosage: UNK
     Route: 065
  4. LORAZEPAM [Concomitant]
     Active Substance: LORAZEPAM
     Indication: Nausea
     Dosage: UNK
     Route: 065
  5. LORAZEPAM [Concomitant]
     Active Substance: LORAZEPAM
     Indication: Anxiety
  6. IMODIUM [Concomitant]
     Active Substance: LOPERAMIDE HYDROCHLORIDE
     Indication: Diarrhoea
     Dosage: UNK
     Route: 065

REACTIONS (22)
  - Ejection fraction abnormal [Unknown]
  - Hallucination, visual [Unknown]
  - Illness [Recovered/Resolved]
  - Pneumonia [Recovering/Resolving]
  - Rosacea [Recovered/Resolved]
  - Swelling face [Unknown]
  - Dysarthria [Unknown]
  - Dyspnoea [Recovered/Resolved]
  - Dermatitis acneiform [Recovered/Resolved]
  - Hypoxia [Recovered/Resolved]
  - Fatigue [Recovered/Resolved]
  - Rash [Recovered/Resolved]
  - Pneumonitis [Unknown]
  - Diarrhoea [Recovered/Resolved]
  - Cardiac failure [Unknown]
  - Confusional state [Unknown]
  - Headache [Recovered/Resolved]
  - Nausea [Recovered/Resolved]
  - Dysphonia [Unknown]
  - Ocular toxicity [Unknown]
  - Abdominal discomfort [Unknown]
  - Hypersensitivity [Unknown]

NARRATIVE: CASE EVENT DATE: 20230108
